FAERS Safety Report 4340091-X (Version None)
Quarter: 2004Q2

REPORT INFORMATION
  Report Type: 
  Country: None (occurrence: None)
  Receive Date: 20040415
  Receipt Date: 20040415
  Transmission Date: 20050107
  Serious: Yes (Disabling)
  Sender: FDA-Public Use
  Company Number: None

PATIENT
  Sex: Female
  Weight: 61.2356 kg

DRUGS (5)
  1. DEPAKOTE [Suspect]
     Indication: BIPOLAR II DISORDER
     Dosage: 2 TABS BID ORAL
     Route: 048
     Dates: start: 19980901, end: 20040414
  2. WELLBUTRIN XL [Concomitant]
  3. ADDERALL 10 [Concomitant]
  4. PROPRANOLOL [Concomitant]
  5. BLACK COHOSH / EVENING [Suspect]

REACTIONS (2)
  - DRUG LEVEL ABOVE THERAPEUTIC [None]
  - DRUG LEVEL BELOW THERAPEUTIC [None]
